FAERS Safety Report 8313436-3 (Version None)
Quarter: 2012Q2

REPORT INFORMATION
  Report Type: 
  Country: None (occurrence: None)
  Receive Date: 20120425
  Receipt Date: 20120425
  Transmission Date: 20120825
  Serious: Yes (Life-Threatening, Hospitalization)
  Sender: FDA-Public Use
  Company Number: None

PATIENT
  Age: 39 Year
  Sex: Female
  Weight: 83.9154 kg

DRUGS (1)
  1. GEODON [Suspect]
     Indication: TENSION
     Dosage: 1X/@ NIGHT ONCE A NIGHT
     Dates: start: 20120320

REACTIONS (1)
  - ANAPHYLACTIC REACTION [None]
